FAERS Safety Report 12533892 (Version 1)
Quarter: 2016Q3

REPORT INFORMATION
  Report Type: Spontaneous
  Country: US (occurrence: US)
  Receive Date: 20160706
  Receipt Date: 20160706
  Transmission Date: 20161109
  Serious: No
  Sender: FDA-Public Use
  Company Number: US-PURDUE-USA-2016-0129623

PATIENT
  Sex: Female

DRUGS (4)
  1. BUTRANS [Suspect]
     Active Substance: BUPRENORPHINE
     Indication: INTERVERTEBRAL DISC PROTRUSION
  2. BUTRANS [Suspect]
     Active Substance: BUPRENORPHINE
     Indication: BURSITIS
  3. BUTRANS [Suspect]
     Active Substance: BUPRENORPHINE
     Indication: SCOLIOSIS
     Dosage: 20 MCG/HR, WEEKLY
     Route: 062
     Dates: start: 2015
  4. BUTRANS [Suspect]
     Active Substance: BUPRENORPHINE
     Indication: ARTHRITIS

REACTIONS (5)
  - Breakthrough pain [Unknown]
  - Application site pruritus [Unknown]
  - Drug ineffective [Unknown]
  - Product adhesion issue [Unknown]
  - Application site rash [Unknown]
